FAERS Safety Report 4964774-3 (Version None)
Quarter: 2006Q2

REPORT INFORMATION
  Report Type: 
  Country: None (occurrence: None)
  Receive Date: 20060403
  Receipt Date: 20060317
  Transmission Date: 20061013
  Serious: Yes (Hospitalization)
  Sender: FDA-Public Use
  Company Number: TOR 2006-0018

PATIENT
  Age: 69 Year
  Sex: Female

DRUGS (1)
  1. FARESTON [Suspect]
     Indication: BREAST CANCER
     Dosage: 40 MG ORAL
     Route: 048
     Dates: start: 20030901, end: 20060221

REACTIONS (1)
  - CRYPTOGENIC ORGANIZING PNEUMONIA [None]
